FAERS Safety Report 15936718 (Version 1)
Quarter: 2019Q1

REPORT INFORMATION
  Report Type: Spontaneous
  Country: IN (occurrence: IN)
  Receive Date: 20190208
  Receipt Date: 20190208
  Transmission Date: 20190417
  Serious: Yes (Hospitalization, Other)
  Sender: FDA-Public Use
  Company Number: IN-ACCORD-104640

PATIENT
  Age: 22 Year
  Sex: Female

DRUGS (1)
  1. AMLODIPINE [Suspect]
     Active Substance: AMLODIPINE BESYLATE
     Dosage: 900 MG (TEN TABLETS OF 90 MG)

REACTIONS (7)
  - Suicide attempt [Unknown]
  - Respiratory failure [Unknown]
  - Shock [Unknown]
  - Pleural effusion [Unknown]
  - Ascites [Unknown]
  - Acute kidney injury [Recovering/Resolving]
  - Overdose [Unknown]
